FAERS Safety Report 5385686-X (Version None)
Quarter: 2007Q3

REPORT INFORMATION
  Report Type: 
  Country: None (occurrence: None)
  Receive Date: 20070710
  Receipt Date: 20060608
  Transmission Date: 20080115
  Serious: Yes (Hospitalization, Other)
  Sender: FDA-Public Use
  Company Number: US-2005-027910

PATIENT
  Age: 23 Year
  Sex: Female
  Weight: 60 kg

DRUGS (1)
  1. YASMIN [Suspect]
     Indication: ORAL CONTRACEPTION
     Dosage: 1 TAB(S), 1X/DAY, ORAL
     Route: 048
     Dates: start: 20050516, end: 20051214

REACTIONS (5)
  - ASTHMA [None]
  - CEREBRAL VENOUS THROMBOSIS [None]
  - HEADACHE [None]
  - PLEURITIC PAIN [None]
  - SINUSITIS [None]
